FAERS Safety Report 6550425-3 (Version None)
Quarter: 2010Q1

REPORT INFORMATION
  Report Type: 
  Country: None (occurrence: None)
  Receive Date: 20100125
  Receipt Date: 20100116
  Transmission Date: 20100710
  Serious: Yes (Other)
  Sender: FDA-Public Use
  Company Number: US-SANOFI-AVENTIS-2010SA003205

PATIENT
  Age: 69 Year
  Sex: Female

DRUGS (3)
  1. LANTUS [Suspect]
     Dosage: DOSE:3 UNIT(S)
     Route: 058
     Dates: start: 20051125
  2. LANTUS [Suspect]
     Dosage: DOSE:13 UNIT(S)
     Route: 058
  3. OPTICLICK [Suspect]
     Dates: start: 20050101

REACTIONS (4)
  - CATARACT [None]
  - GLAUCOMA [None]
  - POLLAKIURIA [None]
  - THIRST [None]
